FAERS Safety Report 4358705-7 (Version None)
Quarter: 2004Q2

REPORT INFORMATION
  Report Type: 
  Country: None (occurrence: None)
  Receive Date: 20040511
  Receipt Date: 20040504
  Transmission Date: 20050107
  Serious: Yes (Life-Threatening, Hospitalization)
  Sender: FDA-Public Use
  Company Number: 2004208788US

PATIENT
  Age: 50 Year
  Sex: Male
  Weight: 119.4 kg

DRUGS (21)
  1. ATGAM [Suspect]
     Indication: MYELODYSPLASTIC SYNDROME
     Dosage: 4820 MG, QD, IV
     Route: 042
     Dates: start: 20040402
  2. FLUDARABINE(FLUDARABINE) [Suspect]
     Indication: MYELODYSPLASTIC SYNDROME
     Dosage: 47 MG, QD, IV
     Route: 042
     Dates: start: 20040402
  3. FUROSEMIDE [Concomitant]
  4. METHYLPREDNISOLONE [Concomitant]
  5. HYDROCORTISONE [Concomitant]
  6. LEVOXYL [Concomitant]
  7. ANDRODERM [Concomitant]
  8. PROGLITAZONE (AMINOSALICYLIC ACID) [Concomitant]
  9. NEXIUM [Concomitant]
  10. VALTREX [Concomitant]
  11. FLUCONAZOLE [Concomitant]
  12. TYLENOL [Concomitant]
  13. XANAX [Concomitant]
  14. ZOFRAN (ONDAONSETRON HYDROCHLORIDE) [Concomitant]
  15. LOPERAMIDE HCL [Concomitant]
  16. OXYCODONE HCL [Concomitant]
  17. DIPHENHYDRAMIEN [Concomitant]
  18. CEFEPIME (CEFEPIME) [Concomitant]
  19. VANCOMYCIN [Concomitant]
  20. SOLU-MEDROL [Concomitant]
  21. ZOLOFT [Concomitant]

REACTIONS (23)
  - ACTIVATED PARTIAL THROMBOPLASTIN TIME PROLONGED [None]
  - ALANINE AMINOTRANSFERASE INCREASED [None]
  - ATRIOVENTRICULAR BLOCK SECOND DEGREE [None]
  - BLOOD CREATINE PHOSPHOKINASE MB INCREASED [None]
  - EJECTION FRACTION DECREASED [None]
  - ELECTROCARDIOGRAM ST SEGMENT DEPRESSION [None]
  - HAEMATOCRIT DECREASED [None]
  - HAEMOGLOBIN DECREASED [None]
  - HYPERBILIRUBINAEMIA [None]
  - HYPERSENSITIVITY [None]
  - HYPOCALCAEMIA [None]
  - HYPOMAGNESAEMIA [None]
  - HYPOTENSION [None]
  - INFUSION RELATED REACTION [None]
  - INTERNATIONAL NORMALISED RATIO INCREASED [None]
  - PROTHROMBIN TIME PROLONGED [None]
  - PULMONARY ARTERIAL PRESSURE INCREASED [None]
  - PYREXIA [None]
  - RENAL FAILURE ACUTE [None]
  - RESPIRATORY DISTRESS [None]
  - SUBENDOCARDIAL ISCHAEMIA [None]
  - TACHYCARDIA [None]
  - THROMBOCYTOPENIA [None]
